FAERS Safety Report 4684338-9 (Version None)
Quarter: 2005Q2

REPORT INFORMATION
  Report Type: 
  Country: None (occurrence: None)
  Receive Date: 20050531
  Receipt Date: 20040723
  Transmission Date: 20051028
  Serious: Yes (Hospitalization)
  Sender: FDA-Public Use
  Company Number: 200415574US

PATIENT
  Age: 3 Month
  Sex: 0

DRUGS (1)
  1. LOVENOX [Suspect]
     Dosage: 6 MG BID SC
     Route: 058

REACTIONS (1)
  - OVERDOSE [None]
